FAERS Safety Report 8583017-5 (Version None)
Quarter: 2012Q3

REPORT INFORMATION
  Report Type: 
  Country: None (occurrence: None)
  Receive Date: 20120809
  Receipt Date: 20120731
  Transmission Date: 20120928
  Serious: Yes (Hospitalization, Other)
  Sender: FDA-Public Use
  Company Number: FR-ELI_LILLY_AND_COMPANY-FR201207009160

PATIENT
  Sex: Female

DRUGS (2)
  1. CARBOPLATIN [Concomitant]
     Indication: NON-SMALL CELL LUNG CANCER STAGE IIIB
     Dosage: 474 MG, UNKNOWN
     Route: 065
     Dates: start: 20120529, end: 20120710
  2. ALIMTA [Suspect]
     Indication: NON-SMALL CELL LUNG CANCER STAGE IIIB
     Dosage: 885 MG, UNKNOWN
     Route: 042
     Dates: start: 20120529, end: 20120710

REACTIONS (6)
  - CONVULSION [None]
  - CHILLS [None]
  - OXYGEN SATURATION DECREASED [None]
  - VOMITING [None]
  - HYPOTENSION [None]
  - HOT FLUSH [None]
